FAERS Safety Report 12612250 (Version 3)
Quarter: 2016Q4

REPORT INFORMATION
  Report Type: Report from Study
  Country: FR (occurrence: FR)
  Receive Date: 20160801
  Receipt Date: 20161028
  Transmission Date: 20170207
  Serious: Yes (Hospitalization, Congenital Anomaly)
  Sender: FDA-Public Use
  Company Number: PHHY2016FR022786

PATIENT
  Age: 24 Year
  Sex: Female
  Weight: 52 kg

DRUGS (3)
  1. TASIGNA [Suspect]
     Active Substance: NILOTINIB
     Indication: ACUTE MYELOID LEUKAEMIA
     Dosage: 2 DF, QD (300 MG)
     Route: 048
     Dates: start: 201511, end: 20151210
  2. PEGASYS [Concomitant]
     Active Substance: PEGINTERFERON ALFA-2A
     Indication: ACUTE MYELOID LEUKAEMIA
     Dosage: 180 UG, QW (PER WEEK)
     Route: 065
     Dates: start: 20151210, end: 20160523
  3. GLIVEC [Suspect]
     Active Substance: IMATINIB MESYLATE
     Indication: CHRONIC MYELOID LEUKAEMIA
     Dosage: 400 MG, QD
     Route: 065
     Dates: start: 20160523

REACTIONS (4)
  - Maternal exposure during pregnancy [Unknown]
  - Polyhydramnios [Not Recovered/Not Resolved]
  - Duodenal stenosis [Not Recovered/Not Resolved]
  - Premature delivery [Unknown]

NARRATIVE: CASE EVENT DATE: 20151109
